FAERS Safety Report 17418243 (Version 2)
Quarter: 2020Q1

REPORT INFORMATION
  Report Type: Spontaneous
  Country: JP (occurrence: JP)
  Receive Date: 20200214
  Receipt Date: 20200313
  Transmission Date: 20200409
  Serious: Yes (Death, Other)
  Sender: FDA-Public Use
  Company Number: JP-ORION CORPORATION ORION PHARMA-ENT 2020-0015

PATIENT
  Age: 76 Year
  Sex: Female

DRUGS (9)
  1. PERGOLIDE [Concomitant]
     Active Substance: PERGOLIDE
     Dosage: 250 UG X 2
     Route: 065
  2. MIANSERIN [Concomitant]
     Active Substance: MIANSERIN
     Route: 065
     Dates: start: 2001
  3. TALIPEXOLE HYDROCHLORIDE [Concomitant]
     Dosage: 0.4 MG VDS
     Route: 065
  4. COMTAN [Suspect]
     Active Substance: ENTACAPONE
     Indication: PARKINSON^S DISEASE
  5. L-DOPA/DCI [Concomitant]
     Dosage: 100-0100-100-100-50
     Route: 065
     Dates: start: 2001
  6. ZOPICLONE [Concomitant]
     Active Substance: ZOPICLONE
     Route: 065
     Dates: start: 2001
  7. COMTAN [Suspect]
     Active Substance: ENTACAPONE
     Indication: THERAPEUTIC RESPONSE SHORTENED
     Route: 048
     Dates: start: 2008
  8. PERGOLIDE [Concomitant]
     Active Substance: PERGOLIDE
     Indication: DECREASED GAIT VELOCITY
     Dosage: 250 UG X 3
     Route: 065
     Dates: start: 1995, end: 2001
  9. L-DOPA/DCI [Concomitant]
     Indication: PARKINSON^S DISEASE
     Dosage: 100 MG X 3
     Route: 065
     Dates: start: 1982, end: 2001

REACTIONS (3)
  - Dementia [Unknown]
  - Choking [Fatal]
  - Stereotypy [Unknown]

NARRATIVE: CASE EVENT DATE: 2010
